FAERS Safety Report 6523176-9 (Version None)
Quarter: 2009Q4

REPORT INFORMATION
  Report Type: 
  Country: None (occurrence: None)
  Receive Date: 20091222
  Receipt Date: 20091204
  Transmission Date: 20100525
  Serious: Yes (Hospitalization)
  Sender: FDA-Public Use
  Company Number: 2009-04909

PATIENT
  Sex: Female
  Weight: 59 kg

DRUGS (4)
  1. VELCADE [Suspect]
     Indication: MULTIPLE MYELOMA
     Dosage: 2.98 MG, INTRAVENOUS
     Route: 042
     Dates: start: 20091102, end: 20091102
  2. MELPHALAN         (MELPHALAN) [Concomitant]
  3. PREDNISONE [Concomitant]
  4. DEXAMETHASONE TAB [Concomitant]

REACTIONS (1)
  - ERYSIPELAS [None]
